FAERS Safety Report 8603369 (Version 4)
Quarter: 2013Q4

REPORT INFORMATION
  Report Type: Spontaneous
  Country: GB (occurrence: GB)
  Receive Date: 20120607
  Receipt Date: 20131106
  Transmission Date: 20140711
  Serious: Yes (Other)
  Sender: FDA-Public Use
  Company Number: GB-009507513-1206USA00248

PATIENT
  Age: 66 Year
  Sex: Male
  Weight: 82 kg

DRUGS (1)
  1. COZAAR [Suspect]
     Route: 048
     Dates: start: 20120309

REACTIONS (5)
  - Peripheral coldness [Unknown]
  - Dyspepsia [Recovering/Resolving]
  - Abdominal pain upper [Unknown]
  - Lethargy [Unknown]
  - Nausea [Unknown]
